FAERS Safety Report 7327998-6 (Version None)
Quarter: 2011Q1

REPORT INFORMATION
  Report Type: 
  Country: None (occurrence: None)
  Receive Date: 20110303
  Receipt Date: 20110222
  Transmission Date: 20110831
  Serious: Yes (Other)
  Sender: FDA-Public Use
  Company Number: GB-JNJFOC-20101203800

PATIENT
  Sex: Male

DRUGS (5)
  1. ILOPROST [Suspect]
     Indication: ANKYLOSING SPONDYLITIS
     Route: 042
  2. INFLIXIMAB, RECOMBINANT [Suspect]
     Indication: ANKYLOSING SPONDYLITIS
     Dosage: 3-4 YEARS
     Route: 042
  3. SULFASALAZINE [Concomitant]
     Route: 048
  4. LANSOPRAZOLE [Concomitant]
     Route: 048
  5. INFLIXIMAB, RECOMBINANT [Suspect]
     Indication: COLITIS
     Dosage: 3-4 YEARS
     Route: 042

REACTIONS (4)
  - LUNG INFILTRATION [None]
  - C-REACTIVE PROTEIN INCREASED [None]
  - CHILLS [None]
  - VOMITING [None]
